FAERS Safety Report 22609445 (Version 1)
Quarter: 2023Q2

REPORT INFORMATION
  Report Type: Spontaneous
  Country: IT (occurrence: IT)
  Receive Date: 20230616
  Receipt Date: 20230616
  Transmission Date: 20230722
  Serious: Yes (Hospitalization, Other)
  Sender: FDA-Public Use
  Company Number: None

PATIENT

DRUGS (10)
  1. SERETIDE [Suspect]
     Active Substance: FLUTICASONE PROPIONATE\SALMETEROL XINAFOATE
     Indication: Asthma
     Dosage: UNK, BID (DOSAGE SCHEDULE: 2 INHALATIONS PER DAY)
     Route: 055
     Dates: start: 2014, end: 2018
  2. ACLIDINIUM BROMIDE [Concomitant]
     Active Substance: ACLIDINIUM BROMIDE
     Indication: Asthma
     Dosage: UNTIL 2019 BRETARIS GENUAIR - INHALATION OF THE CONTENTS OF ONE CAPSULE ONCE A DAY
     Route: 055
     Dates: start: 2014, end: 2019
  3. INDACATEROL MALEATE [Concomitant]
     Active Substance: INDACATEROL MALEATE
     Indication: Chronic obstructive pulmonary disease
     Dosage: SINCE 2016 HIROBRIZ BREEZHALER - INHALATION OF CONTENTS OF ONE CAPSULE ONCE A DAY
     Route: 055
     Dates: start: 2016
  4. SIMVASTATIN [Concomitant]
     Active Substance: SIMVASTATIN
     Indication: Hypercholesterolaemia
     Dosage: UNK
     Route: 048
     Dates: start: 2014, end: 2019
  5. CANDESARTAN CILEXETIL\HYDROCHLOROTHIAZIDE [Concomitant]
     Active Substance: CANDESARTAN CILEXETIL\HYDROCHLOROTHIAZIDE
     Indication: Hypertensive heart disease
     Dosage: UNTIL 2015 BLOPRESID*28CPR 32MG+12 - CANDESARTAN CILEXETIL+HYDROCHLOROTHIAZID - 1 TABLET/DAY
     Route: 048
     Dates: start: 2014, end: 2015
  6. LASIX [Concomitant]
     Active Substance: FUROSEMIDE
     Indication: Oedema peripheral
     Dosage: LASIX*30CPR 25MG- FUROSEMIDE 25MG/DAY - 1 TABLET/DAY
     Route: 048
     Dates: start: 2014
  7. NEBIVOLOL HYDROCHLORIDE [Concomitant]
     Active Substance: NEBIVOLOL HYDROCHLORIDE
     Indication: Hypertension
     Dosage: LOBIVON*28CPR 5MG - NEBIVOLOL 5MG/DAY - 1 TABLET/DAY
     Route: 048
     Dates: start: 2014
  8. CANRENONE [Concomitant]
     Active Substance: CANRENONE
     Indication: Hypertensive heart disease
     Dosage: LUVION*40CPR 50MG - CANRENONE 50MG/DAY - 1 TABLET/DAY
     Route: 048
     Dates: start: 2014
  9. VENTOLIN [Concomitant]
     Active Substance: ALBUTEROL SULFATE
     Indication: Asthma
     Dosage: UNTIL 2015 VENTOLIN - INHALATION WITH NEBULIZERS WITH PHYSIOLOGICAL WATER: 2-3 TIMES A DAY
     Route: 055
     Dates: start: 2014, end: 2015
  10. IRBESARTAN [Concomitant]
     Active Substance: IRBESARTAN
     Indication: Hypertensive heart disease
     Dosage: SINCE 2015 KARVEA*28CPR 150MG - IRBESARTAN 150MG - 1 TABLET/DAY
     Route: 048
     Dates: start: 2015

REACTIONS (2)
  - Cataract [Recovered/Resolved]
  - Surgery [Recovered/Resolved]

NARRATIVE: CASE EVENT DATE: 20170101
